FAERS Safety Report 5317603-2 (Version None)
Quarter: 2007Q2

REPORT INFORMATION
  Report Type: 
  Country: None (occurrence: None)
  Receive Date: 20070507
  Receipt Date: 20070427
  Transmission Date: 20071010
  Serious: Yes (Hospitalization)
  Sender: FDA-Public Use
  Company Number: PHEH2007US05489

PATIENT
  Age: 37 Year
  Sex: Female

DRUGS (4)
  1. VYTORIN [Concomitant]
     Route: 048
  2. ACTOS [Concomitant]
     Route: 048
  3. ZELNORM [Suspect]
     Indication: IRRITABLE BOWEL SYNDROME
     Dosage: 6 MG, BID
     Route: 048
     Dates: start: 20040601, end: 20070101
  4. ZELNORM [Suspect]
     Dosage: 6 MG, QD
     Route: 048
     Dates: start: 20070101, end: 20070411

REACTIONS (10)
  - CEREBROVASCULAR STENOSIS [None]
  - CONDITION AGGRAVATED [None]
  - CONVULSION [None]
  - DYSARTHRIA [None]
  - FACIAL PALSY [None]
  - HEADACHE [None]
  - MEMORY IMPAIRMENT [None]
  - MIGRAINE [None]
  - READING DISORDER [None]
  - SPEECH DISORDER [None]
